FAERS Safety Report 7108828-4 (Version None)
Quarter: 2010Q4

REPORT INFORMATION
  Report Type: 
  Country: None (occurrence: None)
  Receive Date: 20101117
  Receipt Date: 20101108
  Transmission Date: 20110411
  Serious: Yes (Other)
  Sender: FDA-Public Use
  Company Number: GXKR2010GB12286

PATIENT
  Sex: Male

DRUGS (3)
  1. WARFARIN (NGX) [Suspect]
     Route: 065
  2. WARFARIN (NGX) [Interacting]
     Dosage: UNK
  3. PROSTAP [Interacting]
     Dosage: 11.25 MG, UNK
     Route: 042

REACTIONS (2)
  - DRUG INTERACTION [None]
  - INTERNATIONAL NORMALISED RATIO DECREASED [None]
